FAERS Safety Report 19470576 (Version 1)
Quarter: 2021Q2

REPORT INFORMATION
  Report Type: Other
  Country: GB (occurrence: GB)
  Receive Date: 20210629
  Receipt Date: 20210629
  Transmission Date: 20210717
  Serious: No
  Sender: FDA-Public Use
  Company Number: GB-LUPIN PHARMACEUTICALS INC.-2021-10014

PATIENT
  Age: 25 Year
  Sex: Female
  Weight: 101.6 kg

DRUGS (3)
  1. CITALOPRAM [Suspect]
     Active Substance: CITALOPRAM HYDROBROMIDE
     Indication: ANXIETY
     Dosage: UNK (10?20)
     Route: 048
     Dates: start: 2015
  2. DESOGESTREL [Suspect]
     Active Substance: DESOGESTREL
     Indication: CONTRACEPTION
     Dosage: UNK (75)
     Route: 067
     Dates: start: 2014
  3. LEVOTHYROXINE. [Suspect]
     Active Substance: LEVOTHYROXINE
     Indication: THYROID DISORDER
     Dosage: UNK (VARY BETWEEN 125 AND 175)
     Route: 048
     Dates: start: 2005

REACTIONS (1)
  - Vaginal haemorrhage [Recovered/Resolved]
